FAERS Safety Report 10500294 (Version 1)
Quarter: 2014Q4

REPORT INFORMATION
  Report Type: Spontaneous
  Country: US (occurrence: US)
  Receive Date: 20141006
  Receipt Date: 20141006
  Transmission Date: 20150528
  Serious: Yes (Other)
  Sender: FDA-Public Use
  Company Number: US-AMGEN-USASP2014049168

PATIENT
  Sex: Female

DRUGS (1)
  1. PROLIA [Suspect]
     Active Substance: DENOSUMAB
     Indication: OSTEOPOROSIS POSTMENOPAUSAL
     Route: 065

REACTIONS (7)
  - Bone pain [Unknown]
  - Oedema peripheral [Unknown]
  - Cellulitis [Unknown]
  - Myalgia [Unknown]
  - Cystitis [Unknown]
  - Adverse drug reaction [Unknown]
  - Synovitis [Unknown]
